FAERS Safety Report 21123566 (Version 1)
Quarter: 2022Q3

REPORT INFORMATION
  Report Type: Report from Study
  Country: US (occurrence: US)
  Receive Date: 20220724
  Receipt Date: 20220724
  Transmission Date: 20221027
  Serious: Yes (Hospitalization, Other)
  Sender: FDA-Public Use
  Company Number: US-CELGENE-USA-20200400995

PATIENT
  Age: 69 Year
  Sex: Male
  Weight: 88.5 kg

DRUGS (40)
  1. LENALIDOMIDE [Suspect]
     Active Substance: LENALIDOMIDE
     Indication: Plasma cell myeloma
     Route: 048
     Dates: start: 20190205, end: 20190211
  2. LENALIDOMIDE [Suspect]
     Active Substance: LENALIDOMIDE
     Route: 048
     Dates: start: 20200305, end: 20200312
  3. LENALIDOMIDE [Suspect]
     Active Substance: LENALIDOMIDE
     Route: 048
     Dates: start: 20200317, end: 20200330
  4. DEXAMETHASONE [Suspect]
     Active Substance: DEXAMETHASONE
     Indication: Plasma cell myeloma
     Dosage: FREQUENCY TEXT: NOT PROVIDED
     Route: 042
  5. DEXAMETHASONE [Suspect]
     Active Substance: DEXAMETHASONE
     Dosage: 20 MILLIGRAM
     Route: 042
     Dates: start: 20190205, end: 20190205
  6. DEXAMETHASONE [Suspect]
     Active Substance: DEXAMETHASONE
     Dosage: 12 MILLIGRAM
     Route: 048
     Dates: start: 20200312, end: 20200312
  7. DEXAMETHASONE [Suspect]
     Active Substance: DEXAMETHASONE
     Dosage: 12 MILLIGRAM
     Route: 048
     Dates: start: 20200324, end: 20200324
  8. DEXAMETHASONE [Suspect]
     Active Substance: DEXAMETHASONE
     Route: 042
     Dates: end: 20200324
  9. ISATUXIMAB [Suspect]
     Active Substance: ISATUXIMAB
     Indication: Plasma cell myeloma
     Dosage: 10 MILLIGRAM/KILOGRAM
     Route: 042
     Dates: start: 20190205, end: 20190205
  10. ISATUXIMAB [Suspect]
     Active Substance: ISATUXIMAB
     Route: 042
     Dates: end: 20200317
  11. BORTEZOMIB [Suspect]
     Active Substance: BORTEZOMIB
     Indication: Plasma cell myeloma
     Dosage: FREQUENCY TEXT: NOT PROVIDED?1.3 MILLIGRAM/SQ. METER
     Route: 058
     Dates: start: 20190205, end: 20190205
  12. TYLENOL [Concomitant]
     Active Substance: ACETAMINOPHEN
     Indication: Prophylaxis
     Dosage: FREQUENCY TEXT: NOT PROVIDED?650 MILLIGRAM
     Route: 048
     Dates: start: 20200114, end: 20200114
  13. TYLENOL [Concomitant]
     Active Substance: ACETAMINOPHEN
     Dosage: FREQUENCY TEXT: NOT PROVIDED?650 MILLIGRAM
     Route: 048
     Dates: start: 20200206, end: 20200206
  14. TYLENOL [Concomitant]
     Active Substance: ACETAMINOPHEN
     Dosage: FREQUENCY TEXT: NOT PROVIDED?650 MILLIGRAM
     Route: 048
     Dates: start: 20200220, end: 20200220
  15. TYLENOL [Concomitant]
     Active Substance: ACETAMINOPHEN
     Dosage: FREQUENCY TEXT: NOT PROVIDED?650 MILLIGRAM
     Route: 048
     Dates: start: 20200305, end: 20200305
  16. TYLENOL [Concomitant]
     Active Substance: ACETAMINOPHEN
     Dosage: FREQUENCY TEXT: NOT PROVIDED
     Route: 048
     Dates: start: 20200317, end: 20200317
  17. FAMOTIDINE [Concomitant]
     Active Substance: FAMOTIDINE
     Indication: Prophylaxis
     Dosage: FREQUENCY TEXT: NOT PROVIDED?20 MILLIGRAM
     Route: 042
     Dates: start: 20200114, end: 20200114
  18. FAMOTIDINE [Concomitant]
     Active Substance: FAMOTIDINE
     Dosage: FREQUENCY TEXT: NOT PROVIDED?20 MILLIGRAM
     Route: 042
     Dates: start: 20200206, end: 20200206
  19. FAMOTIDINE [Concomitant]
     Active Substance: FAMOTIDINE
     Dosage: FREQUENCY TEXT: NOT PROVIDED?20 MILLIGRAM
     Route: 042
     Dates: start: 20200220, end: 20200220
  20. FAMOTIDINE [Concomitant]
     Active Substance: FAMOTIDINE
     Dosage: FREQUENCY TEXT: NOT PROVIDED?20 MILLIGRAM
     Route: 042
     Dates: start: 20200305, end: 20200305
  21. FAMOTIDINE [Concomitant]
     Active Substance: FAMOTIDINE
     Dosage: FREQUENCY TEXT: NOT PROVIDED?20 MILLIGRAM
     Route: 042
     Dates: start: 20200317, end: 20200317
  22. BENADRYL [Concomitant]
     Active Substance: DIPHENHYDRAMINE HYDROCHLORIDE
     Indication: Prophylaxis
     Dosage: FREQUENCY TEXT: NOT PROVIDED?25 MILLIGRAM
     Route: 042
     Dates: start: 20200114, end: 20200114
  23. BENADRYL [Concomitant]
     Active Substance: DIPHENHYDRAMINE HYDROCHLORIDE
     Dosage: FREQUENCY TEXT: NOT PROVIDED?25 MILLIGRAM
     Route: 042
     Dates: start: 20200206, end: 20200206
  24. BENADRYL [Concomitant]
     Active Substance: DIPHENHYDRAMINE HYDROCHLORIDE
     Dosage: FREQUENCY TEXT: NOT PROVIDED?25 MILLIGRAM
     Route: 042
     Dates: start: 20200220, end: 20200220
  25. BENADRYL [Concomitant]
     Active Substance: DIPHENHYDRAMINE HYDROCHLORIDE
     Dosage: FREQUENCY TEXT: NOT PROVIDED?25 MILLIGRAM
     Route: 042
     Dates: start: 20200305, end: 20200305
  26. BENADRYL [Concomitant]
     Active Substance: DIPHENHYDRAMINE HYDROCHLORIDE
     Route: 042
     Dates: start: 20200317, end: 20200317
  27. LEVOTHYROXINE [Concomitant]
     Active Substance: LEVOTHYROXINE
     Indication: Product used for unknown indication
     Dosage: FREQUENCY TEXT: NOT PROVIDED
     Route: 065
     Dates: start: 20181120
  28. TRIAMTERENE AND HYDROCHLOROTHIAZIDE [Concomitant]
     Active Substance: HYDROCHLOROTHIAZIDE\TRIAMTERENE
     Indication: Product used for unknown indication
     Dosage: FREQUENCY TEXT: NOT PROVIDED
     Route: 065
     Dates: start: 20190115
  29. ASPIRIN [Concomitant]
     Active Substance: ASPIRIN
     Indication: Product used for unknown indication
     Dosage: FREQUENCY TEXT: NOT PROVIDED
     Route: 065
     Dates: start: 20190205
  30. VALACYCLOVIR [Concomitant]
     Active Substance: VALACYCLOVIR HYDROCHLORIDE
     Indication: Product used for unknown indication
     Dosage: FREQUENCY TEXT: NOT PROVIDED
     Route: 065
     Dates: start: 20190205
  31. PREDNISONE [Concomitant]
     Active Substance: PREDNISONE
     Indication: Product used for unknown indication
     Dosage: FREQUENCY TEXT: NOT PROVIDED
     Route: 065
     Dates: start: 20190514
  32. LOVENOX [Concomitant]
     Active Substance: ENOXAPARIN SODIUM
     Indication: Product used for unknown indication
     Dosage: FREQUENCY TEXT: NOT PROVIDED
     Route: 065
     Dates: start: 20190812, end: 20200402
  33. METFORMIN [Concomitant]
     Active Substance: METFORMIN HYDROCHLORIDE
     Indication: Product used for unknown indication
     Dosage: FREQUENCY TEXT: NOT PROVIDED
     Route: 065
     Dates: start: 20190702
  34. TRAMADOL [Concomitant]
     Active Substance: TRAMADOL
     Indication: Product used for unknown indication
     Dosage: FREQUENCY TEXT: NOT PROVIDED
     Route: 065
     Dates: start: 20190811, end: 20200505
  35. ALDACTONE [Concomitant]
     Active Substance: SPIRONOLACTONE
     Indication: Product used for unknown indication
     Dosage: FREQUENCY TEXT: NOT PROVIDED
     Route: 065
     Dates: start: 20191126
  36. LEVAQUIN [Concomitant]
     Active Substance: LEVOFLOXACIN
     Indication: Product used for unknown indication
     Dosage: FREQUENCY TEXT: NOT PROVIDED
     Route: 065
     Dates: start: 20190514, end: 20200406
  37. VITAMIN D [Concomitant]
     Active Substance: VITAMIN D NOS
     Indication: Product used for unknown indication
     Dosage: FREQUENCY TEXT: NOT PROVIDED
     Route: 065
     Dates: start: 20191209
  38. METHOCARBAMOL [Concomitant]
     Active Substance: METHOCARBAMOL
     Indication: Product used for unknown indication
     Dosage: FREQUENCY TEXT: NOT PROVIDED
     Route: 065
     Dates: start: 20200220
  39. SENOKOT-S [Concomitant]
     Active Substance: DOCUSATE SODIUM\SENNOSIDES
     Indication: Product used for unknown indication
     Dosage: FREQUENCY TEXT: NOT PROVIDED
     Route: 065
  40. SYNTHROID [Concomitant]
     Active Substance: LEVOTHYROXINE SODIUM
     Indication: Product used for unknown indication
     Dosage: FREQUENCY TEXT: NOT PROVIDED
     Route: 065
     Dates: start: 20191126

REACTIONS (2)
  - Colitis [Recovered/Resolved]
  - Pneumonia [Recovered/Resolved]

NARRATIVE: CASE EVENT DATE: 20200329
